FAERS Safety Report 15818935 (Version 3)
Quarter: 2019Q1

REPORT INFORMATION
  Report Type: Report from Study
  Country: None (occurrence: US)
  Receive Date: 20190114
  Receipt Date: 20190322
  Transmission Date: 20190417
  Serious: Yes (Hospitalization, Other)
  Sender: FDA-Public Use
  Company Number: US-ABBVIE-19K-163-2619277-00

PATIENT
  Age: 33 Year
  Sex: Male

DRUGS (3)
  1. HUMIRA [Suspect]
     Active Substance: ADALIMUMAB
     Dosage: DAY 7
     Route: 058
     Dates: start: 20181228, end: 20181228
  2. HUMIRA [Suspect]
     Active Substance: ADALIMUMAB
     Indication: COLITIS ULCERATIVE
     Dosage: DAY 1
     Route: 058
     Dates: start: 20181214, end: 20181214
  3. HUMIRA [Suspect]
     Active Substance: ADALIMUMAB
     Route: 058
     Dates: start: 201901

REACTIONS (20)
  - Abdominal pain [Not Recovered/Not Resolved]
  - Splenic infarction [Unknown]
  - Incontinence [Unknown]
  - Hypercoagulation [Unknown]
  - Cerebrovascular accident [Recovering/Resolving]
  - Clostridium difficile infection [Unknown]
  - Cerebral infarction [Unknown]
  - Loss of personal independence in daily activities [Unknown]
  - Insomnia [Unknown]
  - Weight decreased [Recovered/Resolved]
  - Decreased appetite [Unknown]
  - Nausea [Unknown]
  - Gastrointestinal haemorrhage [Unknown]
  - Frequent bowel movements [Unknown]
  - Malaise [Unknown]
  - Thrombosis [Unknown]
  - Hypophagia [Not Recovered/Not Resolved]
  - Diarrhoea [Not Recovered/Not Resolved]
  - Rectal haemorrhage [Not Recovered/Not Resolved]
  - Vomiting [Unknown]

NARRATIVE: CASE EVENT DATE: 201812
